FAERS Safety Report 11451264 (Version 1)
Quarter: 2015Q3

REPORT INFORMATION
  Report Type: Spontaneous
  Country: CA (occurrence: CA)
  Receive Date: 20150903
  Receipt Date: 20150903
  Transmission Date: 20151125
  Serious: Yes (Hospitalization)
  Sender: FDA-Public Use
  Company Number: CA-SUN PHARMACEUTICAL INDUSTRIES LTD-2015US-102534

PATIENT
  Age: 16 Year
  Sex: Female

DRUGS (4)
  1. OLANZAPINE. [Suspect]
     Active Substance: OLANZAPINE
     Indication: COGNITIVE DISORDER
  2. OLANZAPINE. [Suspect]
     Active Substance: OLANZAPINE
     Indication: UNDERWEIGHT
     Dosage: 7.5 MG, DAILY
     Route: 065
  3. OLANZAPINE. [Suspect]
     Active Substance: OLANZAPINE
     Indication: EXCESSIVE EXERCISE
  4. OLANZAPINE. [Suspect]
     Active Substance: OLANZAPINE
     Indication: UNDERWEIGHT
     Dosage: 2.5 MG, DAILY
     Route: 065

REACTIONS (2)
  - Atrioventricular block first degree [Unknown]
  - Off label use [Unknown]
